FAERS Safety Report 8768716 (Version 1)
Quarter: 2012Q4

REPORT INFORMATION
  Report Type: 
  Country: US (occurrence: US)
  Receive Date: 20120904
  Receipt Date: 20120904
  Transmission Date: 20130627
  Serious: No
  Sender: FDA-Public Use
  Company Number: US-AMGEN-USASP2012049124

PATIENT
  Age: 45 Year
  Sex: Male

DRUGS (2)
  1. ENBREL [Suspect]
     Indication: RHEUMATOID ARTHRITIS
     Dosage: 50 mg, qwk
     Dates: start: 20110629, end: 20120725
  2. ARAVA [Concomitant]
     Dosage: 1 mg, UNK
     Dates: start: 20110430

REACTIONS (2)
  - Cellulitis [Not Recovered/Not Resolved]
  - Pyrexia [Unknown]
